FAERS Safety Report 4521699-5 (Version None)
Quarter: 2004Q4

REPORT INFORMATION
  Report Type: 
  Country: None (occurrence: None)
  Receive Date: 20041208
  Receipt Date: 20041208
  Transmission Date: 20050328
  Serious: Yes (Hospitalization)
  Sender: FDA-Public Use
  Company Number: None

PATIENT
  Sex: Male
  Weight: 73.4827 kg

DRUGS (2)
  1. EPIRUBICIN [Suspect]
     Indication: SARCOMA
     Dosage: 57 MG
     Dates: start: 20041115, end: 20041118
  2. IFOSFAMIDE [Suspect]
     Indication: SARCOMA
     Dosage: 4800 MG
     Dates: start: 20041115, end: 20041118

REACTIONS (5)
  - BACTERIAL INFECTION [None]
  - FATIGUE [None]
  - NEUTROPENIA [None]
  - PERIRECTAL ABSCESS [None]
  - SEPTIC SHOCK [None]
